FAERS Safety Report 8849428 (Version 2)
Quarter: 2012Q4

REPORT INFORMATION
  Report Type: Spontaneous
  Country: US (occurrence: None)
  Receive Date: 20121017
  Receipt Date: 20121226
  Transmission Date: 20130627
  Serious: Yes (Death, Other)
  Sender: FDA-Public Use
  Company Number: TPA2012A07630

PATIENT
  Age: 79 Year
  Sex: Male
  Weight: 78.02 kg

DRUGS (3)
  1. ACTOS (PIOGLITAZONE HYDROCHLORIDE) [Suspect]
     Indication: TYPE 2 DIABETES MELLITUS
     Dates: start: 2008, end: 2010
  2. JANUVIA (SITAGLIPTIN PHOSPHATE) [Concomitant]
  3. METFORMIN (METFORMIN) [Concomitant]

REACTIONS (3)
  - Bladder cancer [None]
  - Renal failure [None]
  - Metastasis [None]
